FAERS Safety Report 16335527 (Version 1)
Quarter: 2019Q2

REPORT INFORMATION
  Report Type: Spontaneous
  Country: JP (occurrence: JP)
  Receive Date: 20190521
  Receipt Date: 20190521
  Transmission Date: 20190711
  Serious: Yes (Other)
  Sender: FDA-Public Use
  Company Number: JP-SAKK-2019SA132282AA

PATIENT
  Sex: Female

DRUGS (6)
  1. GASTER [FAMOTIDINE] [Concomitant]
     Indication: URTICARIA
     Dosage: UNK, BID
     Route: 048
     Dates: start: 20190513
  2. ALLEGRA [Suspect]
     Active Substance: FEXOFENADINE HYDROCHLORIDE
     Dosage: INTAKE OF THE DRUG AT 8:10 IN THE MORNING
     Route: 048
     Dates: start: 20190514
  3. ALLEGRA [Suspect]
     Active Substance: FEXOFENADINE HYDROCHLORIDE
     Indication: URTICARIA
     Dosage: 1 DF, 1X
     Route: 048
     Dates: start: 20190510, end: 20190510
  4. ALLEGRA [Suspect]
     Active Substance: FEXOFENADINE HYDROCHLORIDE
     Dosage: TWICE DAILY, MORNING AND NIGHT
     Route: 048
     Dates: start: 20190513, end: 20190513
  5. GASTER [FAMOTIDINE] [Concomitant]
     Indication: ABDOMINAL DISCOMFORT
  6. ALLEGRA [Suspect]
     Active Substance: FEXOFENADINE HYDROCHLORIDE
     Dosage: HALF TABLET IN THE MORNING AND ONE TABLET AT THE NIGHT
     Route: 048
     Dates: start: 20190512, end: 20190512

REACTIONS (7)
  - Gastritis erosive [Unknown]
  - Hypoaesthesia [Unknown]
  - Chest pain [Not Recovered/Not Resolved]
  - Thirst [Unknown]
  - Gastritis erosive [Recovered/Resolved]
  - Erosive oesophagitis [Recovered/Resolved]
  - Incorrect dose administered [Unknown]

NARRATIVE: CASE EVENT DATE: 20190510
